FAERS Safety Report 7528531-6 (Version None)
Quarter: 2011Q2

REPORT INFORMATION
  Report Type: 
  Country: None (occurrence: None)
  Receive Date: 20110607
  Receipt Date: 20100827
  Transmission Date: 20111010
  Serious: No
  Sender: FDA-Public Use
  Company Number: US-ASTRAZENECA-2010SE42968

PATIENT
  Sex: Female

DRUGS (2)
  1. PRILOSEC OTC [Suspect]
     Indication: GASTROOESOPHAGEAL REFLUX DISEASE
     Route: 048
     Dates: start: 20100818, end: 20100825
  2. EVISTA /01303201/ [Concomitant]
     Dosage: UNKNOWN

REACTIONS (7)
  - MUSCLE TIGHTNESS [None]
  - THROAT TIGHTNESS [None]
  - TENSION HEADACHE [None]
  - DRUG INEFFECTIVE [None]
  - CHEST DISCOMFORT [None]
  - BURNING SENSATION [None]
  - MUSCULAR WEAKNESS [None]
